FAERS Safety Report 7629901-8 (Version None)
Quarter: 2011Q3

REPORT INFORMATION
  Report Type: 
  Country: None (occurrence: None)
  Receive Date: 20110722
  Receipt Date: 20110712
  Transmission Date: 20111222
  Serious: No
  Sender: FDA-Public Use
  Company Number: US-JNJFOC-20110506257

PATIENT
  Sex: Female
  Weight: 63.5 kg

DRUGS (4)
  1. RISPERDAL CONSTA [Suspect]
     Indication: SCHIZOAFFECTIVE DISORDER BIPOLAR TYPE
     Route: 030
     Dates: start: 20101001, end: 20110401
  2. CLONAZEPAM [Concomitant]
     Route: 065
  3. INVEGA SUSTENNA [Suspect]
     Indication: PRODUCT USED FOR UNKNOWN INDICATION
     Route: 030
  4. MULTIVITAMINES [Concomitant]
     Indication: GENERAL PHYSICAL CONDITION
     Route: 048

REACTIONS (4)
  - ANXIETY [None]
  - RESTLESSNESS [None]
  - NIGHTMARE [None]
  - INSOMNIA [None]
